FAERS Safety Report 8235795-2 (Version None)
Quarter: 2012Q1

REPORT INFORMATION
  Report Type: 
  Country: None (occurrence: None)
  Receive Date: 20120326
  Receipt Date: 20120313
  Transmission Date: 20120608
  Serious: Yes (Life-Threatening, Hospitalization, Other)
  Sender: FDA-Public Use
  Company Number: IT-FRI-1000014266

PATIENT
  Sex: Female

DRUGS (2)
  1. ESCITALOPRAM [Suspect]
     Indication: ADJUSTMENT DISORDER WITH DEPRESSED MOOD
     Dosage: 10 MG
     Route: 048
     Dates: start: 20061214, end: 20070125
  2. LAMOTRGINE [Suspect]
     Indication: ADJUSTMENT DISORDER WITH DEPRESSED MOOD
     Dosage: 50 MG
     Route: 048
     Dates: start: 20061214, end: 20070125

REACTIONS (4)
  - ARTHRALGIA [None]
  - DRUG RASH WITH EOSINOPHILIA AND SYSTEMIC SYMPTOMS [None]
  - NAUSEA [None]
  - MYALGIA [None]
